FAERS Safety Report 16701136 (Version 2)
Quarter: 2019Q3

REPORT INFORMATION
  Report Type: Spontaneous
  Country: US (occurrence: US)
  Receive Date: 20190814
  Receipt Date: 20190930
  Transmission Date: 20191004
  Serious: No
  Sender: FDA-Public Use
  Company Number: US-GRANULES INDIA LIMITED-2073125

PATIENT
  Sex: Male

DRUGS (2)
  1. PRAVACHOL (PRAVASTATIN) [Concomitant]
     Route: 065
  2. METFORMIN [Suspect]
     Active Substance: METFORMIN HYDROCHLORIDE
     Indication: DIABETES MELLITUS
     Route: 065

REACTIONS (2)
  - Product solubility abnormal [Unknown]
  - Drug ineffective [Unknown]
